FAERS Safety Report 17446623 (Version 5)
Quarter: 2020Q2

REPORT INFORMATION
  Report Type: Spontaneous
  Country: US (occurrence: US)
  Receive Date: 20200221
  Receipt Date: 20200625
  Transmission Date: 20200713
  Serious: Yes (Hospitalization, Other)
  Sender: FDA-Public Use
  Company Number: US-MALLINCKRODT-T202000727

PATIENT
  Sex: Male
  Weight: 95 kg

DRUGS (2)
  1. H.P. ACTHAR [Suspect]
     Active Substance: CORTICOTROPIN
     Indication: POLYMYOSITIS
     Dosage: 80 UNITS TWO TIMES A WEEK
     Route: 058
     Dates: start: 202001, end: 202002
  2. H.P. ACTHAR [Suspect]
     Active Substance: CORTICOTROPIN
     Dosage: 80 UNITS, TWO TIMES A WEEK
     Route: 058
     Dates: start: 202002

REACTIONS (4)
  - Blood glucose increased [Not Recovered/Not Resolved]
  - Polymyositis [Recovered/Resolved]
  - Pyrexia [Not Recovered/Not Resolved]
  - Lung disorder [Not Recovered/Not Resolved]

NARRATIVE: CASE EVENT DATE: 2020
